FAERS Safety Report 4801601-9 (Version None)
Quarter: 2005Q4

REPORT INFORMATION
  Report Type: 
  Country: None (occurrence: None)
  Receive Date: 20051018
  Receipt Date: 20050914
  Transmission Date: 20060501
  Serious: Yes (Hospitalization)
  Sender: FDA-Public Use
  Company Number: 2005AP04934

PATIENT
  Age: 10679 Day
  Sex: Female

DRUGS (2)
  1. ZOLADEX [Suspect]
     Indication: ADENOMYOSIS
     Route: 058
     Dates: start: 20050518
  2. SUPPLEMENT [Concomitant]

REACTIONS (3)
  - ALANINE AMINOTRANSFERASE INCREASED [None]
  - ASPARTATE AMINOTRANSFERASE INCREASED [None]
  - HEPATIC FUNCTION ABNORMAL [None]
